FAERS Safety Report 6655242-1 (Version None)
Quarter: 2010Q1

REPORT INFORMATION
  Report Type: 
  Country: None (occurrence: None)
  Receive Date: 20100324
  Receipt Date: 20100203
  Transmission Date: 20100710
  Serious: Yes (Other)
  Sender: FDA-Public Use
  Company Number: JP-SOLVAY-00310000506

PATIENT
  Age: 61 Year
  Sex: Female

DRUGS (9)
  1. LUVOX [Suspect]
     Indication: DRUG USE FOR UNKNOWN INDICATION
     Dosage: ORAL
     Route: 048
  2. CLOTIAZEPAM (CLOTIAZEPAM) [Concomitant]
  3. BROMAZEPAM (BROMAZEPAM) [Concomitant]
  4. LACTOMIN (LACTOBACILLUS SPOROGENES) [Concomitant]
  5. ALBUMIN TANNATE (ALBUMIN TANNATE) [Concomitant]
  6. MEPENZOLATE BROMIDE (MEPENZOLATE BROMIDE) [Concomitant]
  7. ETIZOLAM (ETIZOLAM) [Concomitant]
  8. PRANLUKAST HYDRATE (PRANLUKAST HYDRATE) [Concomitant]
  9. BUNAZOSIN HYDROCHLORIDE (BUNAZOSIN HYDROCHLORIDE) [Concomitant]

REACTIONS (4)
  - ABDOMINAL PAIN [None]
  - GASTROINTESTINAL DISORDER [None]
  - PHLEBOSCLEROSIS [None]
  - VOMITING [None]
